FAERS Safety Report 6053215-3 (Version None)
Quarter: 2009Q1

REPORT INFORMATION
  Report Type: 
  Country: None (occurrence: None)
  Receive Date: 20090123
  Receipt Date: 20090109
  Transmission Date: 20090719
  Serious: Yes (Hospitalization)
  Sender: FDA-Public Use
  Company Number: 2009S1000597

PATIENT
  Age: 59 Year
  Sex: Female

DRUGS (6)
  1. BISOPROLOL FUMARATE [Suspect]
     Indication: HYPERTENSION
     Dosage: 5 MG; TWICE A DAY; ORAL
     Route: 048
     Dates: start: 20071001, end: 20080712
  2. NITEPRESS (NITRENDIPINE) [Suspect]
     Indication: HYPERTENSION
     Dosage: 10 MG; DAILY; ORAL
     Route: 048
     Dates: start: 20080101, end: 20080714
  3. PANTOZOL [Concomitant]
  4. MOXONIDINE [Concomitant]
  5. RAMIPRIL [Concomitant]
  6. MOTILIUM [Concomitant]

REACTIONS (1)
  - TACHYCARDIA [None]
